FAERS Safety Report 14388527 (Version 1)
Quarter: 2018Q1

REPORT INFORMATION
  Report Type: Spontaneous
  Country: FR (occurrence: FR)
  Receive Date: 20180115
  Receipt Date: 20180115
  Transmission Date: 20180509
  Serious: Yes (Life-Threatening, Other)
  Sender: FDA-Public Use
  Company Number: FR-MYLANLABS-2018M1001175

PATIENT
  Age: 69 Year
  Sex: Male
  Weight: 105 kg

DRUGS (2)
  1. BISOPROLOL [Suspect]
     Active Substance: BISOPROLOL
     Indication: ACUTE CORONARY SYNDROME
     Route: 048
     Dates: start: 20160606, end: 20160620
  2. BRILIQUE [Suspect]
     Active Substance: TICAGRELOR
     Indication: ACUTE CORONARY SYNDROME
     Route: 048
     Dates: start: 20160606

REACTIONS (1)
  - Sinoatrial block [Recovered/Resolved]

NARRATIVE: CASE EVENT DATE: 20160620
